FAERS Safety Report 18709249 (Version 1)
Quarter: 2021Q1

REPORT INFORMATION
  Report Type: Spontaneous
  Country: SE (occurrence: SE)
  Receive Date: 20210106
  Receipt Date: 20210106
  Transmission Date: 20210419
  Serious: Yes (Other)
  Sender: FDA-Public Use
  Company Number: SE-ANIPHARMA-2020-SE-000052

PATIENT
  Age: 64 Year
  Sex: Male
  Weight: 28.12 kg

DRUGS (1)
  1. BICALUTAMIDE. [Suspect]
     Active Substance: BICALUTAMIDE
     Indication: NEOPLASM PROSTATE
     Dosage: 150 MG DAILY
     Route: 048
     Dates: start: 20181219

REACTIONS (5)
  - Skin fragility [Unknown]
  - Off label use [Not Recovered/Not Resolved]
  - Depressed mood [Unknown]
  - Muscle atrophy [Unknown]
  - Sexual dysfunction [Unknown]

NARRATIVE: CASE EVENT DATE: 20181219
